FAERS Safety Report 25006175 (Version 5)
Quarter: 2025Q1

REPORT INFORMATION
  Report Type: Spontaneous
  Country: AU (occurrence: AU)
  Receive Date: 20250224
  Receipt Date: 20250331
  Transmission Date: 20250409
  Serious: Yes (Other)
  Sender: APELLIS PHARMACEUTICALS
  Company Number: AU-BIOVITRUM-2025-AU-002326

PATIENT

DRUGS (17)
  1. PEGCETACOPLAN [Suspect]
     Active Substance: PEGCETACOPLAN
     Indication: C3 glomerulopathy
     Dosage: MONDAY AND THURSDAY
     Route: 058
     Dates: start: 202406
  2. PEGCETACOPLAN [Suspect]
     Active Substance: PEGCETACOPLAN
     Indication: C3 glomerulopathy
     Dosage: MONDAY AND THURSDAY
     Route: 058
     Dates: start: 202406
  3. PEGCETACOPLAN [Suspect]
     Active Substance: PEGCETACOPLAN
     Indication: Ischaemia
  4. CYCLOPHOSPHAMIDE [Suspect]
     Active Substance: CYCLOPHOSPHAMIDE
     Indication: Immunosuppression
     Route: 042
     Dates: start: 2023
  5. CYCLOPHOSPHAMIDE [Suspect]
     Active Substance: CYCLOPHOSPHAMIDE
     Indication: Hypergammaglobulinaemia benign monoclonal
  6. CYCLOPHOSPHAMIDE [Suspect]
     Active Substance: CYCLOPHOSPHAMIDE
     Indication: Ischaemia
  7. BORTEZOMIB [Suspect]
     Active Substance: BORTEZOMIB
     Indication: Immunosuppression
     Dates: start: 2023
  8. BORTEZOMIB [Suspect]
     Active Substance: BORTEZOMIB
     Indication: Hypergammaglobulinaemia benign monoclonal
  9. BORTEZOMIB [Suspect]
     Active Substance: BORTEZOMIB
     Indication: Ischaemia
  10. PREDNISONE [Concomitant]
     Active Substance: PREDNISONE
     Indication: Ischaemia
     Dosage: DAILY
     Route: 048
  11. PREDNISONE [Concomitant]
     Active Substance: PREDNISONE
     Indication: C3 glomerulopathy
  12. WARFARIN [Concomitant]
     Active Substance: WARFARIN
     Indication: Ischaemia
     Dosage: DAILY
     Route: 048
  13. VITAMIN D [Concomitant]
     Active Substance: VITAMIN D NOS
     Indication: Product used for unknown indication
     Dosage: DAILY
     Route: 048
  14. ATORVASTATIN [Concomitant]
     Active Substance: ATORVASTATIN
     Indication: Dyslipidaemia
     Dosage: DAILY
     Route: 048
  15. RAMIPRIL [Concomitant]
     Active Substance: RAMIPRIL
     Indication: Product used for unknown indication
     Dosage: DAILY
  16. ASPIRIN [Concomitant]
     Active Substance: ASPIRIN
     Indication: Product used for unknown indication
     Dosage: 100 M DAILY
  17. PHENYTOIN [Concomitant]
     Active Substance: PHENYTOIN
     Indication: Product used for unknown indication
     Dosage: 200 MG MANE (MORNING) AND 230 MG NOCTE (NIGHT)

REACTIONS (3)
  - Bowen^s disease [Unknown]
  - Off label use [Unknown]
  - Skin reaction [Unknown]

NARRATIVE: CASE EVENT DATE: 20240601
